FAERS Safety Report 15328054 (Version 1)
Quarter: 2018Q3

REPORT INFORMATION
  Report Type: Spontaneous
  Country: JP (occurrence: JP)
  Receive Date: 20180828
  Receipt Date: 20180828
  Transmission Date: 20181010
  Serious: Yes (Other)
  Sender: FDA-Public Use
  Company Number: PHHY2018JP084368

PATIENT

DRUGS (2)
  1. RIVASTACH [Suspect]
     Active Substance: RIVASTIGMINE
     Dosage: 1.9 MG, QD (PATCH 2.5 (CM2)
     Route: 062
  2. RIVASTACH [Suspect]
     Active Substance: RIVASTIGMINE
     Indication: DEMENTIA ALZHEIMER^S TYPE
     Dosage: 9.5 MG QD (PATCH 10 (CM2)
     Route: 065

REACTIONS (3)
  - Pneumonia aspiration [Unknown]
  - Hypophagia [Unknown]
  - Depressed level of consciousness [Unknown]
